FAERS Safety Report 8348276 (Version 3)
Quarter: 2013Q4

REPORT INFORMATION
  Report Type: Spontaneous
  Country: FR (occurrence: FR)
  Receive Date: 20120123
  Receipt Date: 20131030
  Transmission Date: 20140711
  Serious: Yes (Death, Hospitalization, Disabling, Other)
  Sender: FDA-Public Use
  Company Number: FR-ACTELION-A-CH2012-59466

PATIENT
  Age: 75 Year
  Sex: Female
  Weight: 49 kg

DRUGS (4)
  1. TRACLEER [Suspect]
     Indication: SCLERODERMA RENAL CRISIS
     Dosage: 62.5 MG, BID
     Route: 048
     Dates: start: 20110311, end: 20110523
  2. TRIATEC [Suspect]
     Dosage: UNK
  3. LYRICA [Suspect]
     Dosage: UNK
     Dates: end: 20110505
  4. ATHYMIL [Suspect]
     Dosage: UNK
     Dates: end: 20110505

REACTIONS (12)
  - Meningorrhagia [Fatal]
  - Intracranial pressure increased [Fatal]
  - Meningioma [Fatal]
  - Radiation necrosis [Fatal]
  - Coma [Fatal]
  - Hypotension [Unknown]
  - Anaemia [Unknown]
  - Somnolence [Fatal]
  - General physical health deterioration [Fatal]
  - Gastrointestinal haemorrhage [Recovered/Resolved]
  - Gastritis [Recovered/Resolved]
  - Packed red blood cell transfusion [Recovered/Resolved]
